FAERS Safety Report 12766907 (Version 2)
Quarter: 2016Q4

REPORT INFORMATION
  Report Type: Report from Study
  Country: FR (occurrence: FR)
  Receive Date: 20160921
  Receipt Date: 20161018
  Transmission Date: 20170207
  Serious: Yes (Other)
  Sender: FDA-Public Use
  Company Number: FR-PFIZER INC-2016434900

PATIENT
  Age: 53 Year
  Sex: Female
  Weight: 60 kg

DRUGS (2)
  1. ATGAM [Suspect]
     Active Substance: EQUINE THYMOCYTE IMMUNE GLOBULIN
     Indication: APLASTIC ANAEMIA
     Dosage: 1200 MG, DAILY
     Route: 042
     Dates: start: 20151119, end: 20151120
  2. ATGAM [Suspect]
     Active Substance: EQUINE THYMOCYTE IMMUNE GLOBULIN
     Dosage: 2400 MG, DAILY
     Route: 042
     Dates: start: 20151121, end: 20151123

REACTIONS (5)
  - Basal cell carcinoma [Recovered/Resolved]
  - Serum sickness [Recovered/Resolved]
  - Clonal evolution [Recovering/Resolving]
  - Temporomandibular joint syndrome [Recovered/Resolved]
  - Arthralgia [Recovered/Resolved]

NARRATIVE: CASE EVENT DATE: 20151125
